FAERS Safety Report 24344554 (Version 1)
Quarter: 2024Q3

REPORT INFORMATION
  Report Type: Spontaneous
  Country: GB (occurrence: GB)
  Receive Date: 20240920
  Receipt Date: 20240920
  Transmission Date: 20241017
  Serious: Yes (Other)
  Sender: BOEHRINGER INGELHEIM
  Company Number: None

PATIENT
  Age: 56 Year
  Sex: Female

DRUGS (9)
  1. JARDIANCE [Suspect]
     Active Substance: EMPAGLIFLOZIN
     Indication: Diabetes mellitus
     Dates: end: 20240905
  2. ATORVASTATIN [Concomitant]
     Active Substance: ATORVASTATIN
     Indication: Adverse drug reaction
     Dates: start: 20240404
  3. ETORICOXIB [Concomitant]
     Active Substance: ETORICOXIB
     Indication: Ankylosing spondylitis
     Dates: start: 2012
  4. PANTOPRAZOLE [Concomitant]
     Active Substance: PANTOPRAZOLE
     Indication: Gastrooesophageal reflux disease
     Dates: start: 2021
  5. NORTRIPTYLINE [Concomitant]
     Active Substance: NORTRIPTYLINE
     Indication: Ankylosing spondylitis
     Dates: start: 2022
  6. MEDROXYPROGESTERONE [Concomitant]
     Active Substance: MEDROXYPROGESTERONE
     Indication: Menopause
     Dates: start: 2021
  7. ESTROGENS [Concomitant]
     Active Substance: ESTROGENS
     Indication: Menopause
     Dates: start: 2022
  8. SYMBICORT [Concomitant]
     Active Substance: BUDESONIDE\FORMOTEROL FUMARATE DIHYDRATE
     Indication: Asthma
     Dates: start: 2020
  9. ALBUTEROL [Concomitant]
     Active Substance: ALBUTEROL
     Indication: Asthma
     Dates: start: 2008

REACTIONS (1)
  - Rectal haemorrhage [Recovered/Resolved]

NARRATIVE: CASE EVENT DATE: 20240819
